FAERS Safety Report 24704142 (Version 2)
Quarter: 2024Q4

REPORT INFORMATION
  Report Type: Spontaneous
  Country: FR (occurrence: FR)
  Receive Date: 20241206
  Receipt Date: 20241221
  Transmission Date: 20250115
  Serious: Yes (Hospitalization)
  Sender: ABBVIE
  Company Number: US-ABBVIE-6033714

PATIENT
  Sex: Male

DRUGS (1)
  1. DEPAKOTE [Suspect]
     Active Substance: DIVALPROEX SODIUM
     Indication: Mania
     Dosage: FORM STRENGTH: 500 MG,?1 TABLET IN THE MORNING, 1 TABLET IN THE EVENING?DURATION 3 WEEKS
     Route: 065

REACTIONS (7)
  - Suffocation feeling [Unknown]
  - Confusional state [Recovered/Resolved]
  - Speech disorder [Recovered/Resolved]
  - Dysgraphia [Unknown]
  - Pressure of speech [Unknown]
  - Drug ineffective [Unknown]
  - Aphasia [Recovered/Resolved]
